FAERS Safety Report 9949638 (Version 1)
Quarter: 2014Q1

REPORT INFORMATION
  Report Type: Spontaneous
  Country: FR (occurrence: FR)
  Receive Date: 20140304
  Receipt Date: 20140304
  Transmission Date: 20141002
  Serious: Yes (Hospitalization)
  Sender: FDA-Public Use
  Company Number: FR-ROCHE-1355004

PATIENT
  Age: 79 Year
  Sex: Male

DRUGS (2)
  1. ZELBORAF [Suspect]
     Indication: MALIGNANT MELANOMA
     Dosage: 240 MG TABLET 4 IN MORNING AND EVENING
     Route: 048
     Dates: start: 20131103, end: 20131109
  2. ZELBORAF [Suspect]
     Dosage: HALF DOSE
     Route: 048
     Dates: start: 20131121

REACTIONS (4)
  - Blood creatine phosphokinase increased [Recovered/Resolved]
  - Hepatocellular injury [Recovered/Resolved]
  - Blood lactate dehydrogenase increased [Recovered/Resolved]
  - Rash maculo-papular [Recovered/Resolved]
